FAERS Safety Report 5474168-2 (Version None)
Quarter: 2007Q4

REPORT INFORMATION
  Report Type: 
  Country: None (occurrence: None)
  Receive Date: 20071002
  Receipt Date: 20070926
  Transmission Date: 20080405
  Serious: Yes (Death)
  Sender: FDA-Public Use
  Company Number: AT-ABBOTT-07P-009-0418480-00

PATIENT
  Age: 32 Year
  Sex: Male
  Weight: 45 kg

DRUGS (8)
  1. KALETRA [Suspect]
     Indication: HIV INFECTION
     Route: 048
     Dates: start: 20041021, end: 20051116
  2. KALETRA [Suspect]
     Indication: TREATMENT FAILURE
  3. LAMIVUDINE + ZIDOVUDINE [Concomitant]
     Indication: HIV INFECTION
     Route: 048
     Dates: start: 20041221, end: 20051116
  4. BACTRIM DS [Concomitant]
     Indication: PROPHYLAXIS
     Route: 048
     Dates: start: 20030301, end: 20051209
  5. FOLIC ACID [Concomitant]
     Indication: PROPHYLAXIS
     Route: 048
     Dates: start: 20030301, end: 20051209
  6. FLUNITRAZEPAM [Concomitant]
     Indication: DRUG USE FOR UNKNOWN INDICATION
     Route: 048
     Dates: start: 19990101, end: 20051209
  7. MOXIFLOXACIN HYDROCHLORIDE [Concomitant]
     Indication: DRUG USE FOR UNKNOWN INDICATION
     Route: 048
     Dates: start: 20050607, end: 20050828
  8. CLARITHROMYCIN [Concomitant]
     Indication: DRUG USE FOR UNKNOWN INDICATION
     Route: 048
     Dates: start: 20051017, end: 20051209

REACTIONS (4)
  - ATYPICAL MYCOBACTERIAL INFECTION [None]
  - DIARRHOEA [None]
  - LIPODYSTROPHY ACQUIRED [None]
  - TREATMENT NONCOMPLIANCE [None]
